FAERS Safety Report 4313030-5 (Version None)
Quarter: 2004Q1

REPORT INFORMATION
  Report Type: 
  Country: None (occurrence: None)
  Receive Date: 20040304
  Receipt Date: 20040220
  Transmission Date: 20041129
  Serious: Yes (Other)
  Sender: FDA-Public Use
  Company Number: 200410888BCC

PATIENT
  Age: 59 Year
  Sex: Female
  Weight: 86.1834 kg

DRUGS (13)
  1. ALEVE (CAPLET) [Suspect]
     Indication: ARTHRITIS
     Dosage: 440 MG, ONCE, ORAL
     Route: 048
     Dates: start: 20040215
  2. HUMULIN [Concomitant]
  3. HYZAAR [Concomitant]
  4. GLUCOPHAGE X [Concomitant]
  5. SYNTHROID [Concomitant]
  6. ZOLOFT [Concomitant]
  7. EVISTA [Concomitant]
  8. LIPITOR [Concomitant]
  9. MULTI-VITAMIN [Concomitant]
  10. OMEGA 3 [Concomitant]
  11. VITAMIN E [Concomitant]
  12. VITAMIN C [Concomitant]
  13. GLUCOSAMINE [Concomitant]

REACTIONS (2)
  - DYSPEPSIA [None]
  - INTRAOCULAR PRESSURE INCREASED [None]
